FAERS Safety Report 11361592 (Version 1)
Quarter: 2015Q3

REPORT INFORMATION
  Report Type: Spontaneous
  Country: US (occurrence: US)
  Receive Date: 20150810
  Receipt Date: 20150810
  Transmission Date: 20151125
  Serious: No
  Sender: FDA-Public Use
  Company Number: GXBR2015US001675

PATIENT
  Age: 57 Year
  Sex: Female

DRUGS (3)
  1. ALPRAZOLAM TABLETS USP [Suspect]
     Active Substance: ALPRAZOLAM
     Indication: INSOMNIA
     Dosage: 0.75 MG, QHS
     Route: 048
     Dates: start: 201409, end: 20150707
  2. PROGESTERONE. [Concomitant]
     Active Substance: PROGESTERONE
     Dosage: UNK DF, UNK
  3. VIVELLE [Concomitant]
     Active Substance: ESTRADIOL
     Dosage: UNK DF, UNK

REACTIONS (6)
  - Disturbance in attention [Unknown]
  - Somnolence [Unknown]
  - Feeling abnormal [Unknown]
  - Dizziness [Unknown]
  - Lethargy [Unknown]
  - Drug effect increased [Unknown]

NARRATIVE: CASE EVENT DATE: 20150706
